FAERS Safety Report 8397573-3 (Version None)
Quarter: 2012Q2

REPORT INFORMATION
  Report Type: 
  Country: None (occurrence: None)
  Receive Date: 20120529
  Receipt Date: 20120529
  Transmission Date: 20120825
  Serious: Yes (Life-Threatening, Hospitalization)
  Sender: FDA-Public Use
  Company Number: None

PATIENT
  Sex: Male
  Weight: 43.9989 kg

DRUGS (1)
  1. PRADAXA [Suspect]

REACTIONS (1)
  - CEREBRAL HAEMORRHAGE [None]
